FAERS Safety Report 6594573-0 (Version None)
Quarter: 2010Q1

REPORT INFORMATION
  Report Type: 
  Country: None (occurrence: None)
  Receive Date: 20100222
  Receipt Date: 20100215
  Transmission Date: 20100710
  Serious: Yes (Other)
  Sender: FDA-Public Use
  Company Number: JP-B.I. PHARMACEUTICALS,INC./RIDGEFIELD-2010-DE-00634GD

PATIENT
  Age: 80 Year
  Sex: Female

DRUGS (6)
  1. MICARDIS [Suspect]
  2. DILTIAZEM HYDROCHLORIDE [Suspect]
  3. CALONAL [Suspect]
     Indication: PYREXIA
  4. SUCRALFATE [Suspect]
  5. CEFDINIR [Suspect]
  6. VOLTAREN [Suspect]
     Route: 054

REACTIONS (3)
  - ACUTE GENERALISED EXANTHEMATOUS PUSTULOSIS [None]
  - ERYTHEMA MULTIFORME [None]
  - PYREXIA [None]
